FAERS Safety Report 8393117-0 (Version None)
Quarter: 2012Q2

REPORT INFORMATION
  Report Type: 
  Country: None (occurrence: None)
  Receive Date: 20120529
  Receipt Date: 20120410
  Transmission Date: 20120825
  Serious: No
  Sender: FDA-Public Use
  Company Number: US-ABBOTT-12P-163-0923735-00

PATIENT
  Sex: Male
  Weight: 81.72 kg

DRUGS (3)
  1. ANDROGEL [Suspect]
     Indication: BLOOD TESTOSTERONE DECREASED
     Dosage: 4 PUMPS PER DAY
     Dates: start: 20110201
  2. ANDROGEL [Suspect]
     Dosage: 2 PUMPS PER DAY.
     Dates: start: 20110601, end: 20110901
  3. ANDROGEL [Suspect]
     Dosage: 3 PUMPS PER DAY.
     Dates: start: 20110901, end: 20120201

REACTIONS (3)
  - BLOOD TESTOSTERONE DECREASED [None]
  - INCORRECT STORAGE OF DRUG [None]
  - FEELING ABNORMAL [None]
